FAERS Safety Report 25302498 (Version 1)
Quarter: 2025Q2

REPORT INFORMATION
  Report Type: Spontaneous
  Country: IN (occurrence: IN)
  Receive Date: 20250512
  Receipt Date: 20250512
  Transmission Date: 20250717
  Serious: Yes (Life-Threatening, Other)
  Sender: PFIZER
  Company Number: IN-PFIZER INC-PV202500054321

PATIENT
  Age: 45 Year
  Sex: Female

DRUGS (2)
  1. TRANEXAMIC ACID [Suspect]
     Active Substance: TRANEXAMIC ACID
     Indication: Spinal anaesthesia
     Route: 037
  2. BUPIVACAINE [Suspect]
     Active Substance: BUPIVACAINE
     Indication: Spinal anaesthesia
     Route: 037

REACTIONS (5)
  - Product appearance confusion [Unknown]
  - Wrong product administered [Unknown]
  - Incorrect route of product administration [Unknown]
  - Myoclonic epilepsy [Unknown]
  - Clonic convulsion [Unknown]
